FAERS Safety Report 9720453 (Version 2)
Quarter: 2013Q4

REPORT INFORMATION
  Report Type: Spontaneous
  Country: RU (occurrence: RU)
  Receive Date: 20131129
  Receipt Date: 20131206
  Transmission Date: 20140711
  Serious: Yes (Other)
  Sender: FDA-Public Use
  Company Number: RU-ROCHE-1309170

PATIENT
  Age: 8 Year
  Sex: Female

DRUGS (2)
  1. ACTEMRA [Suspect]
     Indication: JUVENILE IDIOPATHIC ARTHRITIS
     Route: 042
     Dates: start: 201311, end: 201311
  2. ABATACEPT [Concomitant]

REACTIONS (1)
  - Agranulocytosis [Recovered/Resolved]
